FAERS Safety Report 8540707-8 (Version None)
Quarter: 2012Q3

REPORT INFORMATION
  Report Type: 
  Country: None (occurrence: None)
  Receive Date: 20120726
  Receipt Date: 20110615
  Transmission Date: 20120928
  Serious: Yes (Other)
  Sender: FDA-Public Use
  Company Number: US-MYLANLABS-2011S1012339

PATIENT
  Sex: Female

DRUGS (1)
  1. CIPROFLAXACIN [Suspect]

REACTIONS (3)
  - ARTHRALGIA [None]
  - TENDON RUPTURE [None]
  - PAIN IN EXTREMITY [None]
